FAERS Safety Report 7546423-3 (Version None)
Quarter: 2011Q2

REPORT INFORMATION
  Report Type: 
  Country: None (occurrence: None)
  Receive Date: 20110614
  Receipt Date: 20110104
  Transmission Date: 20111010
  Serious: Yes (Hospitalization)
  Sender: FDA-Public Use
  Company Number: US-BAYER-201028040NA

PATIENT
  Age: 43 Year
  Sex: Female
  Weight: 81.633 kg

DRUGS (7)
  1. YAZ [Suspect]
     Indication: PREMENSTRUAL SYNDROME
  2. YAZ [Suspect]
  3. NSAID'S [Concomitant]
  4. YAZ [Suspect]
     Indication: CONTRACEPTION
     Dosage: UNK
     Route: 048
     Dates: start: 20080201, end: 20080701
  5. PANTOPRAZOLE [Concomitant]
     Indication: GASTROOESOPHAGEAL REFLUX DISEASE
     Dosage: UNK
     Dates: start: 20080701
  6. LUTERA-28 [Concomitant]
     Dosage: UNK
     Dates: start: 20080401
  7. LEVOTHYROXINE SODIUM [Concomitant]
     Dosage: UNK
     Dates: start: 20080401

REACTIONS (8)
  - DYSPNOEA [None]
  - ANXIETY [None]
  - PULMONARY EMBOLISM [None]
  - OEDEMA PERIPHERAL [None]
  - QUALITY OF LIFE DECREASED [None]
  - DEPRESSION [None]
  - DEEP VEIN THROMBOSIS [None]
  - SENSORY DISTURBANCE [None]
